FAERS Safety Report 19351144 (Version 1)
Quarter: 2021Q2

REPORT INFORMATION
  Report Type: Spontaneous
  Country: ES (occurrence: ES)
  Receive Date: 20210531
  Receipt Date: 20210531
  Transmission Date: 20210717
  Serious: Yes (Death, Life-Threatening)
  Sender: FDA-Public Use
  Company Number: ES-ACCORD-226609

PATIENT
  Age: 49 Year
  Sex: Female

DRUGS (11)
  1. JANUVIA [Concomitant]
     Active Substance: SITAGLIPTIN PHOSPHATE
     Indication: TYPE 2 DIABETES MELLITUS
     Dosage: 50 MG, 28 TABLETS
     Dates: start: 20171219
  2. DIAMICRON [Concomitant]
     Active Substance: GLICLAZIDE
     Indication: TYPE 2 DIABETES MELLITUS
     Dosage: 30 MG, 60 TABLETS
     Dates: start: 20111105
  3. METFORMIN CINFA [Concomitant]
     Indication: TYPE 2 DIABETES MELLITUS
     Dosage: 850 MG EFG, 50 TABLETS
     Route: 048
     Dates: start: 20110613
  4. LEXATIN [Concomitant]
     Indication: PRODUCT USED FOR UNKNOWN INDICATION
     Dosage: 1.5 MG, 30 CAPSULES
     Dates: start: 20210304
  5. PACLITAXEL KABI [Suspect]
     Active Substance: PACLITAXEL
     Indication: OVARIAN CANCER
     Dosage: 1 VIAL OF 50 ML
     Route: 042
     Dates: start: 20210311
  6. BOREA [Concomitant]
     Active Substance: MEGESTROL ACETATE
     Indication: DEFICIENCY ANAEMIA
     Dosage: 160 MG TABLETS, 30 TABLETS
     Dates: start: 20210304
  7. HIDROSALURETIL [Concomitant]
     Active Substance: HYDROCHLOROTHIAZIDE
     Indication: HYPERTENSION
     Dosage: 50 MG TABLETS EFG, 20 TABLETS
     Route: 048
     Dates: start: 20200905
  8. CARBOPLATIN ACCORD [Suspect]
     Active Substance: CARBOPLATIN
     Indication: OVARIAN CANCER
     Dosage: 1 VIAL OF 45 ML
     Route: 042
     Dates: start: 20210311
  9. FERROUS SULFATE. [Concomitant]
     Active Substance: FERROUS SULFATE
     Indication: DEFICIENCY ANAEMIA
     Dosage: 105 MG, 30 TABLETS
     Dates: start: 20210227
  10. BISOPROLOL NORMON [Concomitant]
     Active Substance: BISOPROLOL FUMARATE
     Indication: HYPERTENSION
     Dosage: EFG, 28 TABLETS
     Dates: start: 20210219
  11. RAMIPRIL RATIOPHARM [Concomitant]
     Active Substance: RAMIPRIL
     Indication: HYPERTENSION
     Dosage: 5MG, 56 TABLETS
     Dates: start: 20200905

REACTIONS (1)
  - Acute myocardial infarction [Fatal]

NARRATIVE: CASE EVENT DATE: 20210311
